FAERS Safety Report 8341998 (Version 2)
Quarter: 2012Q4

REPORT INFORMATION
  Report Type: 
  Country: US (occurrence: US)
  Receive Date: 20120118
  Receipt Date: 20120829
  Transmission Date: 20130627
  Serious: Yes (Hospitalization)
  Sender: FDA-Public Use
  Company Number: US-GLAXOSMITHKLINE-A0846667A

PATIENT
  Age: 44 Year
  Sex: Male
  Weight: 135.5 kg

DRUGS (9)
  1. AVANDIA [Suspect]
     Indication: TYPE 2 DIABETES MELLITUS
     Dosage: 4MG Twice per day
     Route: 048
     Dates: start: 200301, end: 200705
  2. GLYBURIDE [Concomitant]
  3. ALTACE [Concomitant]
  4. AMITRIPTYLINE [Concomitant]
  5. GLUCOPHAGE [Concomitant]
  6. GLYNASE [Concomitant]
  7. NEURONTIN [Concomitant]
  8. TOPROL XL [Concomitant]
  9. TRICOR [Concomitant]

REACTIONS (3)
  - Myocardial infarction [Not Recovered/Not Resolved]
  - Intracardiac thrombus [Unknown]
  - Libido decreased [Unknown]
